FAERS Safety Report 4381703-4 (Version None)
Quarter: 2004Q2

REPORT INFORMATION
  Report Type: 
  Country: None (occurrence: None)
  Receive Date: 20040615
  Receipt Date: 20040602
  Transmission Date: 20050107
  Serious: Yes (Hospitalization)
  Sender: FDA-Public Use
  Company Number: 2004217082FR

PATIENT
  Age: 63 Year
  Sex: Male

DRUGS (5)
  1. ALDACTONE [Suspect]
     Indication: HYPERTENSION
     Dosage: ORAL
     Route: 048
     Dates: end: 20030407
  2. CORDARONE [Suspect]
     Indication: ATRIAL FIBRILLATION
     Dosage: ORAL
     Route: 048
     Dates: start: 20020615, end: 20030407
  3. SOTALOL HCL [Suspect]
     Indication: ESSENTIAL HYPERTENSION
     Dosage: 0.5 DF, BID, ORAL
     Route: 048
     Dates: end: 20030615
  4. COZAAR [Suspect]
     Indication: ESSENTIAL HYPERTENSION
     Dosage: ORAL
     Route: 048
     Dates: start: 19970630, end: 20030604
  5. RAMIPRIL [Suspect]
     Indication: ESSENTIAL HYPERTENSION
     Dosage: ORAL
     Route: 048
     Dates: end: 20030407

REACTIONS (4)
  - BLOOD IMMUNOGLOBULIN E INCREASED [None]
  - DRUG INEFFECTIVE [None]
  - ECZEMA [None]
  - XEROSIS [None]
